FAERS Safety Report 9441132 (Version 1)
Quarter: 2013Q3

REPORT INFORMATION
  Report Type: Spontaneous
  Country: GB (occurrence: None)
  Receive Date: 20130801
  Receipt Date: 20130801
  Transmission Date: 20140515
  Serious: Yes (Other)
  Sender: FDA-Public Use
  Company Number: AUR-APL-2013-06286

PATIENT
  Age: 28 Month
  Sex: 0

DRUGS (1)
  1. PAROXETINE (PAROXETINE) [Suspect]
     Indication: DEPRESSION
     Route: 064

REACTIONS (2)
  - Foetal exposure during pregnancy [None]
  - Developmental delay [None]
